FAERS Safety Report 23405885 (Version 1)
Quarter: 2024Q1

REPORT INFORMATION
  Report Type: Spontaneous
  Country: US (occurrence: US)
  Receive Date: 20240116
  Receipt Date: 20240116
  Transmission Date: 20240410
  Serious: No
  Sender: FDA-Public Use
  Company Number: US-HALOZYME THERAPEUTICS, INC.-2023-US-HYL-00055

PATIENT

DRUGS (2)
  1. HYLENEX RECOMBINANT [Suspect]
     Active Substance: HYALURONIDASE (HUMAN RECOMBINANT)
     Indication: Dermal filler overcorrection
     Dosage: TWO INJECTIONS OF HYLENEX, DOSE UNKNOWN, ON 22-DEC-2022 INTO HER NASAL FOLDS TO DISSOLVE A ^RHA FILL
     Route: 065
     Dates: start: 20221222, end: 20221222
  2. HYLENEX RECOMBINANT [Suspect]
     Active Substance: HYALURONIDASE (HUMAN RECOMBINANT)
     Dosage: TWO INJECTIONS OF HYLENEX, DOSE UNKNOWN, ON 22-DEC-2022 INTO HER NASAL FOLDS TO DISSOLVE A ^RHA FILL
     Route: 065
     Dates: start: 20221222, end: 20221222

REACTIONS (7)
  - Scleral degeneration [Not Recovered/Not Resolved]
  - Head discomfort [Not Recovered/Not Resolved]
  - Dermatitis [Not Recovered/Not Resolved]
  - Paranasal sinus discomfort [Not Recovered/Not Resolved]
  - Skin laxity [Not Recovered/Not Resolved]
  - Systemic toxicity [Not Recovered/Not Resolved]
  - Off label use [Not Recovered/Not Resolved]

NARRATIVE: CASE EVENT DATE: 20221222
